FAERS Safety Report 8799987 (Version 2)
Quarter: 2015Q1

REPORT INFORMATION
  Report Type: Report from Study
  Country: US (occurrence: US)
  Receive Date: 20120921
  Receipt Date: 20150316
  Transmission Date: 20150721
  Serious: Yes (Death)
  Sender: FDA-Public Use
  Company Number: US-ROCHE-1124680

PATIENT
  Sex: Female

DRUGS (19)
  1. ZOFRAN [Concomitant]
     Active Substance: ONDANSETRON HYDROCHLORIDE
     Route: 048
  2. ALLEGRA [Concomitant]
     Active Substance: FEXOFENADINE HYDROCHLORIDE
     Route: 048
  3. NEXIUM [Concomitant]
     Active Substance: ESOMEPRAZOLE MAGNESIUM
     Route: 065
  4. ZOFRAN [Concomitant]
     Active Substance: ONDANSETRON HYDROCHLORIDE
     Route: 042
  5. MIDRIN [Concomitant]
     Active Substance: ACETAMINOPHEN\DICHLORALPHENAZONE\ISOMETHEPTENE
     Route: 048
  6. ALOXI [Concomitant]
     Active Substance: PALONOSETRON HYDROCHLORIDE
     Route: 042
  7. ZAROXOLYN [Concomitant]
     Active Substance: METOLAZONE
     Route: 042
  8. AVASTIN [Suspect]
     Active Substance: BEVACIZUMAB
     Indication: HEPATIC CANCER
     Route: 042
     Dates: start: 20090313
  9. DECADRON [Concomitant]
     Active Substance: DEXAMETHASONE
     Route: 042
  10. ATENOLOL. [Concomitant]
     Active Substance: ATENOLOL
     Route: 065
  11. CLONAZEPAM. [Concomitant]
     Active Substance: CLONAZEPAM
     Route: 065
  12. ATIVAN [Concomitant]
     Active Substance: LORAZEPAM
     Route: 065
  13. XELODA [Concomitant]
     Active Substance: CAPECITABINE
     Route: 048
  14. AMBIEN [Concomitant]
     Active Substance: ZOLPIDEM TARTRATE
  15. MIDRIN [Concomitant]
     Active Substance: ACETAMINOPHEN\DICHLORALPHENAZONE\ISOMETHEPTENE
     Route: 048
  16. MIDRIN [Concomitant]
     Active Substance: ACETAMINOPHEN\DICHLORALPHENAZONE\ISOMETHEPTENE
     Route: 048
  17. OXY IR [Concomitant]
     Active Substance: OXYCODONE HYDROCHLORIDE
     Route: 048
  18. SINGULAIR [Concomitant]
     Active Substance: MONTELUKAST SODIUM
     Route: 048
  19. ZOLPIDEM [Concomitant]
     Active Substance: ZOLPIDEM\ZOLPIDEM TARTRATE
     Route: 065

REACTIONS (11)
  - Abdominal distension [Unknown]
  - Pain [Unknown]
  - Abdominal pain upper [Unknown]
  - Oedema peripheral [Unknown]
  - Off label use [Unknown]
  - Anaemia [Unknown]
  - Death [Fatal]
  - Constipation [Unknown]
  - Fatigue [Unknown]
  - Weight increased [Unknown]
  - Ascites [Unknown]
